FAERS Safety Report 20388467 (Version 2)
Quarter: 2022Q2

REPORT INFORMATION
  Report Type: Spontaneous
  Country: US (occurrence: US)
  Receive Date: 20220128
  Receipt Date: 20220428
  Transmission Date: 20220721
  Serious: No
  Sender: FDA-Public Use
  Company Number: US-ENDO PHARMACEUTICALS INC-2021-013102

PATIENT
  Age: 30 Year
  Sex: Female

DRUGS (3)
  1. QWO [Suspect]
     Active Substance: COLLAGENASE CLOSTRIDIUM HISTOLYTICUM-AAES
     Indication: Product used for unknown indication
     Dosage: UNK UNKNOWN, UNKNOWN, (TREATMENT TWO)
     Route: 065
     Dates: start: 20210709
  2. QWO [Suspect]
     Active Substance: COLLAGENASE CLOSTRIDIUM HISTOLYTICUM-AAES
     Dosage: UNK UNKNOWN, UNKNOWN, (TREATMENT THREE)
     Route: 065
     Dates: start: 20210823
  3. QWO [Suspect]
     Active Substance: COLLAGENASE CLOSTRIDIUM HISTOLYTICUM-AAES
     Dosage: UNK UNKNOWN, UNKNOWN, (TREATMENT ONE)
     Route: 065
     Dates: start: 20210617

REACTIONS (5)
  - Lipodystrophy acquired [Not Recovered/Not Resolved]
  - Skin indentation [Unknown]
  - Contusion [Not Recovered/Not Resolved]
  - Skin hyperpigmentation [Unknown]
  - Off label use [Unknown]

NARRATIVE: CASE EVENT DATE: 20210617
